FAERS Safety Report 4679398-5 (Version None)
Quarter: 2005Q2

REPORT INFORMATION
  Report Type: 
  Country: None (occurrence: None)
  Receive Date: 20050531
  Receipt Date: 20050523
  Transmission Date: 20051028
  Serious: Yes (Hospitalization)
  Sender: FDA-Public Use
  Company Number: 231930K05USA

PATIENT
  Age: 34 Year
  Sex: Female

DRUGS (1)
  1. REBIF [Suspect]
     Indication: MULTIPLE SCLEROSIS
     Dosage: 44 MCG, 3 IN 1 WEEKS,
     Dates: start: 20030417, end: 20050501

REACTIONS (7)
  - ABASIA [None]
  - DRUG INEFFECTIVE [None]
  - DRUG INTOLERANCE [None]
  - HYPERAESTHESIA [None]
  - INJECTION SITE INFECTION [None]
  - INSOMNIA [None]
  - PHARMACEUTICAL PRODUCT COMPLAINT [None]
